FAERS Safety Report 24460961 (Version 1)
Quarter: 2024Q4

REPORT INFORMATION
  Report Type: Report from Study
  Country: CN (occurrence: CN)
  Receive Date: 20241018
  Receipt Date: 20241018
  Transmission Date: 20250114
  Serious: No
  Sender: ROCHE
  Company Number: CN-ROCHE-3548837

PATIENT
  Sex: Male

DRUGS (4)
  1. MABTHERA [Suspect]
     Active Substance: RITUXIMAB
     Indication: Follicular lymphoma
     Dosage: FOR 4 CYCLES
     Route: 065
     Dates: start: 202208, end: 202212
  2. MABTHERA [Suspect]
     Active Substance: RITUXIMAB
     Dosage: FOR 4 CYCLES
     Route: 065
     Dates: start: 202212, end: 202306
  3. LENALIDOMIDE [Suspect]
     Active Substance: LENALIDOMIDE
     Indication: Follicular lymphoma
     Dosage: FOR 4 CYCLES
     Route: 065
     Dates: start: 202208, end: 202212
  4. BENDAMUSTINE [Suspect]
     Active Substance: BENDAMUSTINE
     Indication: Follicular lymphoma
     Dosage: FOR 4 CYCLES
     Route: 065
     Dates: start: 202212, end: 202306

REACTIONS (2)
  - Disease progression [Not Recovered/Not Resolved]
  - Drug ineffective [Unknown]

NARRATIVE: CASE EVENT DATE: 20221201
